FAERS Safety Report 10150636 (Version 3)
Quarter: 2014Q2

REPORT INFORMATION
  Report Type: Spontaneous
  Country: US (occurrence: US)
  Receive Date: 20140502
  Receipt Date: 20140619
  Transmission Date: 20141212
  Serious: Yes (Other)
  Sender: FDA-Public Use
  Company Number: US-TEVA-479238USA

PATIENT
  Age: 20 Year
  Sex: Female
  Weight: 69.01 kg

DRUGS (1)
  1. PARAGARD 380A [Suspect]
     Indication: CONTRACEPTION
     Route: 015
     Dates: start: 20140425, end: 20140501

REACTIONS (7)
  - Device dislocation [Recovered/Resolved]
  - Secretion discharge [Not Recovered/Not Resolved]
  - Vaginal haemorrhage [Unknown]
  - Pelvic pain [Not Recovered/Not Resolved]
  - Complication of device insertion [Recovered/Resolved]
  - Medical device complication [Unknown]
  - Discomfort [Unknown]
